FAERS Safety Report 10445592 (Version 1)
Quarter: 2014Q3

REPORT INFORMATION
  Report Type: Spontaneous
  Country: US (occurrence: US)
  Receive Date: 20140908
  Receipt Date: 20140908
  Transmission Date: 20150326
  Serious: No
  Sender: FDA-Public Use
  Company Number: US-BRISTOL-MYERS SQUIBB COMPANY-20734091

PATIENT
  Age: 42 Year
  Sex: Female
  Weight: 58.96 kg

DRUGS (2)
  1. ABILIFY [Suspect]
     Active Substance: ARIPIPRAZOLE
     Indication: BIPOLAR DISORDER
     Dosage: INT. ON MAR + APR2014
  2. CELEXA [Suspect]
     Active Substance: CITALOPRAM HYDROBROMIDE
     Indication: BIPOLAR DISORDER

REACTIONS (6)
  - Drug dose omission [Unknown]
  - Feeling abnormal [Unknown]
  - Depression [Unknown]
  - Irritability [Unknown]
  - Weight decreased [Unknown]
  - Aggression [Unknown]

NARRATIVE: CASE EVENT DATE: 201304
